FAERS Safety Report 20374074 (Version 3)
Quarter: 2022Q1

REPORT INFORMATION
  Report Type: Report from Study
  Country: CA (occurrence: CA)
  Receive Date: 20220125
  Receipt Date: 20220228
  Transmission Date: 20220423
  Serious: Yes (Other)
  Sender: FDA-Public Use
  Company Number: CA-TAKEDA-2022TUS004004

PATIENT
  Age: 58 Year
  Sex: Female

DRUGS (3)
  1. VEDOLIZUMAB [Suspect]
     Active Substance: VEDOLIZUMAB
     Indication: Colitis ulcerative
     Dosage: 300 MILLIGRAM
     Route: 042
     Dates: start: 20220111
  2. VEDOLIZUMAB [Suspect]
     Active Substance: VEDOLIZUMAB
     Dosage: 300 MILLIGRAM
     Route: 042
  3. PREDNISONE [Concomitant]
     Active Substance: PREDNISONE
     Dosage: 40 MILLIGRAM
     Route: 048

REACTIONS (7)
  - Colitis ulcerative [Unknown]
  - Colitis microscopic [Unknown]
  - Gastrointestinal pain [Unknown]
  - Vein collapse [Unknown]
  - Malabsorption [Unknown]
  - Food intolerance [Unknown]
  - Malnutrition [Unknown]

NARRATIVE: CASE EVENT DATE: 20220101
